FAERS Safety Report 9335674 (Version 2)
Quarter: 2013Q3

REPORT INFORMATION
  Report Type: Spontaneous
  Country: US (occurrence: US)
  Receive Date: 20130605
  Receipt Date: 20130709
  Transmission Date: 20140515
  Serious: Yes (Other)
  Sender: FDA-Public Use
  Company Number: US-B.I. PHARMACEUTICALS,INC./RIDGEFIELD-2013-BI-14447BP

PATIENT
  Age: 73 Year
  Sex: Male
  Weight: 89.81 kg

DRUGS (5)
  1. PRADAXA [Suspect]
     Indication: CARDIOVASCULAR EVENT PROPHYLAXIS
     Dosage: 300 MG
     Route: 055
     Dates: start: 20121001, end: 20121003
  2. PRADAXA [Suspect]
     Indication: ATRIAL FIBRILLATION
     Dosage: 300 MG
     Route: 055
     Dates: start: 201304, end: 201304
  3. PRADAXA [Suspect]
     Dosage: 300 MG
     Route: 048
     Dates: start: 201305, end: 20130528
  4. ASPIRIN [Concomitant]
     Dosage: 81 MG
     Route: 048
     Dates: start: 20121004
  5. WARFARIN [Concomitant]
     Indication: CARDIAC ABLATION
     Dosage: 5 MG
     Route: 048
     Dates: start: 20130410, end: 20130521

REACTIONS (7)
  - Atrial fibrillation [Recovered/Resolved]
  - Blood urine present [Recovered/Resolved]
  - Blood urine present [Recovered/Resolved]
  - Nephrolithiasis [Recovered/Resolved]
  - Blood urine present [Unknown]
  - Flatulence [Not Recovered/Not Resolved]
  - Diarrhoea [Not Recovered/Not Resolved]
